FAERS Safety Report 8435065-3 (Version None)
Quarter: 2012Q2

REPORT INFORMATION
  Report Type: 
  Country: None (occurrence: None)
  Receive Date: 20120614
  Receipt Date: 20120605
  Transmission Date: 20120825
  Serious: Yes (Other)
  Sender: FDA-Public Use
  Company Number: PHEH2012US010392

PATIENT
  Sex: Female

DRUGS (12)
  1. FEXOFENADINE HYDROCHLORIDE [Concomitant]
     Dosage: UNK UKN, UNK
  2. ALLEGRA-D 12 HOUR [Concomitant]
     Dosage: UNK UKN, UNK
  3. ESTRADIOL [Concomitant]
     Dosage: UNK UKN, UNK
  4. LEUCOVORIN CALCIUM [Concomitant]
     Dosage: UNK UKN, UNK
  5. RECLAST [Suspect]
     Route: 042
  6. HUMIRA [Suspect]
     Indication: RHEUMATOID ARTHRITIS
     Dosage: 40 MG/0.8 ML, ONCE IN 2 WEEK
  7. CALCIUM [Concomitant]
     Dosage: UNK UKN, UNK
  8. FISH OIL [Concomitant]
     Dosage: UNK UKN, UNK
  9. FLUTICASONE PROPIONATE [Concomitant]
     Dosage: UNK UKN, UNK
  10. ACETAMINOPHEN [Concomitant]
     Dosage: UNK UKN, UNK
  11. ERGOCALCIFEROL [Concomitant]
     Dosage: UNK UKN, UNK
  12. BIOTIN [Concomitant]
     Dosage: UNK UKN, UNK

REACTIONS (6)
  - HYPOKINESIA [None]
  - HEMIPLEGIA [None]
  - PYREXIA [None]
  - HEADACHE [None]
  - BLOOD PRESSURE INCREASED [None]
  - PALPITATIONS [None]
